FAERS Safety Report 6154558-5 (Version None)
Quarter: 2009Q2

REPORT INFORMATION
  Report Type: 
  Country: None (occurrence: None)
  Receive Date: 20090410
  Receipt Date: 20090410
  Transmission Date: 20091009
  Serious: No
  Sender: FDA-Public Use
  Company Number: None

PATIENT
  Age: 67 Year
  Sex: Male

DRUGS (1)
  1. DEPAKOTE [Suspect]
     Dosage: TWO (1000MG) PO BID
     Route: 048

REACTIONS (1)
  - PANCYTOPENIA [None]
